FAERS Safety Report 7385708-0 (Version None)
Quarter: 2011Q1

REPORT INFORMATION
  Report Type: 
  Country: None (occurrence: None)
  Receive Date: 20110301
  Receipt Date: 20101118
  Transmission Date: 20110831
  Serious: Yes (Life-Threatening, Hospitalization, Disabling)
  Sender: FDA-Public Use
  Company Number: 2211100-US-JNJFO C-20090206413

PATIENT
  Age: 36 Month
  Sex: Female
  Weight: 15.3 kg

DRUGS (4)
  1. CHILDREN'S MOTRIN [Suspect]
     Indication: COUGH
  2. CHILDREN'S TYLENOL (ACETAMINOPHEN) UNSPECIFIED [Suspect]
     Indication: PRODUCT USED FOR UNKNOWN INDICATION
  3. SULFUR (SULFUR) [Suspect]
     Indication: ILL-DEFINED DISORDER
  4. ERYTHROMYCIN [Suspect]
     Indication: ILL-DEFINED DISORDER

REACTIONS (2)
  - BLINDNESS [None]
  - TOXIC EPIDERMAL NECROLYSIS [None]
